FAERS Safety Report 13496309 (Version 1)
Quarter: 2017Q2

REPORT INFORMATION
  Report Type: Spontaneous
  Country: US (occurrence: US)
  Receive Date: 20170428
  Receipt Date: 20170428
  Transmission Date: 20170830
  Serious: Yes (Hospitalization, Other)
  Sender: FDA-Public Use
  Company Number: None

PATIENT
  Age: 59 Year
  Sex: Female
  Weight: 85.5 kg

DRUGS (12)
  1. LAMICTAL [Concomitant]
     Active Substance: LAMOTRIGINE
  2. CENTRUM [Concomitant]
     Active Substance: VITAMINS
  3. MULTIVITAMIN [Concomitant]
     Active Substance: VITAMINS
  4. SEROQUEL [Suspect]
     Active Substance: QUETIAPINE FUMARATE
     Indication: INSOMNIA
     Dosage: ?          QUANTITY:2 TABLET(S);?
     Route: 048
     Dates: start: 20150904, end: 20170328
  5. NARCO [Concomitant]
  6. CPAP [Concomitant]
     Active Substance: DEVICE
  7. PRAMAPEXOLE [Concomitant]
  8. WELLBUTRIN [Concomitant]
     Active Substance: BUPROPION HYDROCHLORIDE
  9. CLONAZEPAM. [Concomitant]
     Active Substance: CLONAZEPAM
  10. SINGULAIR [Concomitant]
     Active Substance: MONTELUKAST SODIUM
  11. HYSINGLA ER [Concomitant]
     Active Substance: HYDROCODONE BITARTRATE
  12. VITAMIN D3 [Concomitant]
     Active Substance: CHOLECALCIFEROL

REACTIONS (5)
  - Fall [None]
  - Somnambulism [None]
  - Bone cyst [None]
  - Off label use [None]
  - Therapy change [None]

NARRATIVE: CASE EVENT DATE: 20170403
